FAERS Safety Report 15113729 (Version 1)
Quarter: 2018Q3

REPORT INFORMATION
  Report Type: Spontaneous
  Country: US (occurrence: US)
  Receive Date: 20180706
  Receipt Date: 20180706
  Transmission Date: 20181010
  Serious: Yes (Other)
  Sender: FDA-Public Use
  Company Number: US-PFIZER INC-2018268468

PATIENT
  Sex: Female

DRUGS (1)
  1. NEURONTIN [Suspect]
     Active Substance: GABAPENTIN
     Indication: SEIZURE
     Dosage: UNK

REACTIONS (4)
  - Influenza [Unknown]
  - Condition aggravated [Unknown]
  - Malaise [Unknown]
  - Seizure [Unknown]
